FAERS Safety Report 4290537-0 (Version None)
Quarter: 2004Q1

REPORT INFORMATION
  Report Type: 
  Country: None (occurrence: None)
  Receive Date: 20040209
  Receipt Date: 20040202
  Transmission Date: 20041129
  Serious: Yes (Death)
  Sender: FDA-Public Use
  Company Number: RB-465-2004

PATIENT
  Age: 34 Year
  Sex: Male

DRUGS (5)
  1. BUPRENORPHINE HYDROCHLORIDE [Suspect]
     Indication: DRUG DEPENDENCE
     Route: 048
     Dates: end: 20031020
  2. LEVOMEPROMAZINE [Suspect]
     Route: 048
     Dates: end: 20031020
  3. NORDAZEPAM [Concomitant]
  4. TETRAHYDROCANNABINOL [Concomitant]
  5. ALCOHOL [Concomitant]

REACTIONS (4)
  - BLOOD ALCOHOL INCREASED [None]
  - BLOOD CANNABINOIDS INCREASED [None]
  - DRUG LEVEL ABOVE THERAPEUTIC [None]
  - DRUG LEVEL DECREASED [None]
